FAERS Safety Report 5443039-X (Version None)
Quarter: 2007Q3

REPORT INFORMATION
  Report Type: 
  Country: None (occurrence: None)
  Receive Date: 20070905
  Receipt Date: 20070825
  Transmission Date: 20080115
  Serious: Yes (Hospitalization, Other)
  Sender: FDA-Public Use
  Company Number: JP-JNJFOC-20040203202

PATIENT
  Sex: Male
  Weight: 68 kg

DRUGS (6)
  1. REMICADE [Suspect]
     Indication: RHEUMATOID ARTHRITIS
     Route: 041
  2. RHEUMATREX [Concomitant]
     Route: 065
     Dates: start: 20030109
  3. RHEUMATREX [Concomitant]
     Route: 065
     Dates: start: 20030109
  4. VOLTAREN [Concomitant]
     Indication: RHEUMATOID ARTHRITIS
     Route: 048
  5. METALCAPTASE [Concomitant]
     Indication: RHEUMATOID ARTHRITIS
     Route: 048
  6. LANSOPRAZOLE [Concomitant]
     Route: 048

REACTIONS (5)
  - HAEMANGIOMA [None]
  - HEADACHE [None]
  - INFUSION RELATED REACTION [None]
  - TIBIA FRACTURE [None]
  - URTICARIA [None]
